FAERS Safety Report 5433627-9 (Version None)
Quarter: 2007Q3

REPORT INFORMATION
  Report Type: 
  Country: None (occurrence: None)
  Receive Date: 20070831
  Receipt Date: 20070821
  Transmission Date: 20080115
  Serious: Yes (Other)
  Sender: FDA-Public Use
  Company Number: US-NOVOPROD-266793

PATIENT
  Sex: Female
  Weight: 24 kg

DRUGS (2)
  1. NORDITROPIN [Suspect]
     Indication: GROWTH HORMONE DEFICIENCY
     Dosage: 1.1 MG, QD
     Route: 058
     Dates: start: 20070705
  2. LAMICTAL [Concomitant]
     Indication: CONVULSION
     Dosage: 200 MG, BID
     Route: 048

REACTIONS (1)
  - CONVULSION [None]
